FAERS Safety Report 26211575 (Version 1)
Quarter: 2025Q4

REPORT INFORMATION
  Report Type: Spontaneous
  Country: US (occurrence: US)
  Receive Date: 20251230
  Receipt Date: 20251230
  Transmission Date: 20260117
  Serious: Yes (Hospitalization)
  Sender: GE HEALTHCARE
  Company Number: US-ASTELLAS-2025-AER-071142

PATIENT
  Age: 91 Year
  Sex: Male

DRUGS (1)
  1. REGADENOSON [Suspect]
     Active Substance: REGADENOSON
     Indication: Scan myocardial perfusion
     Dosage: UNK UNK, TOTAL
     Route: 065

REACTIONS (1)
  - Supraventricular tachycardia [Recovered/Resolved]
